FAERS Safety Report 8987376 (Version 6)
Quarter: 2013Q4

REPORT INFORMATION
  Report Type: Spontaneous
  Country: US (occurrence: US)
  Receive Date: 20121226
  Receipt Date: 20131203
  Transmission Date: 20140711
  Serious: Yes (Death, Life-Threatening, Hospitalization, Disabling, Other)
  Sender: FDA-Public Use
  Company Number: US-009507513-1212USA008473

PATIENT
  Sex: Male
  Weight: 95.24 kg

DRUGS (1)
  1. JANUMET [Suspect]
     Indication: TYPE 2 DIABETES MELLITUS
     Dosage: 50MG/ 500-1000 MG, BID
     Route: 048
     Dates: start: 200906

REACTIONS (47)
  - Pancreatic carcinoma metastatic [Fatal]
  - Pancreaticoduodenectomy [Unknown]
  - Pancreatobiliary sphincterotomy [Unknown]
  - Bile duct adenocarcinoma [Unknown]
  - Pulmonary embolism [Unknown]
  - Metastases to liver [Unknown]
  - Metastases to peritoneum [Unknown]
  - Gastric cancer [Unknown]
  - Neoplasm prostate [Unknown]
  - Prothrombin time prolonged [Unknown]
  - Leukocytosis [Unknown]
  - Sepsis [Unknown]
  - Pancreatitis chronic [Not Recovered/Not Resolved]
  - Stent placement [Unknown]
  - Hepatitis [Unknown]
  - Duodenal ulcer [Unknown]
  - Hypertension [Unknown]
  - Hyperlipidaemia [Unknown]
  - Erectile dysfunction [Unknown]
  - Transfusion [Unknown]
  - Transfusion [Unknown]
  - Radiotherapy [Unknown]
  - Bile duct obstruction [Unknown]
  - Small intestine polyp [Unknown]
  - Cholecystitis chronic [Not Recovered/Not Resolved]
  - Impaired healing [Unknown]
  - Pleural effusion [Unknown]
  - Aortic arteriosclerosis [Unknown]
  - Pulmonary mass [Unknown]
  - Atelectasis [Unknown]
  - Lung infection [Unknown]
  - Hepatic haematoma [Not Recovered/Not Resolved]
  - Deep vein thrombosis [Unknown]
  - Prostatic cyst [Unknown]
  - Prostatic abscess [Unknown]
  - Hypophagia [Unknown]
  - Abdominal cavity drainage [Unknown]
  - Ascites [Unknown]
  - Fibrin D dimer increased [Unknown]
  - Cardiac murmur [Unknown]
  - Local swelling [Unknown]
  - International normalised ratio increased [Unknown]
  - Oesophageal obstruction [Unknown]
  - Hyperkalaemia [Unknown]
  - Pain in extremity [Unknown]
  - Thrombocytopenia [Unknown]
  - Prosthesis user [Unknown]
